FAERS Safety Report 8987800 (Version 8)
Quarter: 2013Q2

REPORT INFORMATION
  Report Type: Report from Study
  Country: GB (occurrence: GB)
  Receive Date: 20121227
  Receipt Date: 20130624
  Transmission Date: 20140414
  Serious: Yes (Death)
  Sender: FDA-Public Use
  Company Number: GB-GLAXOSMITHKLINE-B0854653A

PATIENT
  Age: 60 Year
  Sex: Male

DRUGS (16)
  1. OFATUMUMAB [Suspect]
     Indication: RICHTER^S SYNDROME
     Dosage: 300MG PER DAY
     Route: 042
     Dates: start: 20121214
  2. CYCLOPHOSPHAMIDE [Suspect]
     Indication: RICHTER^S SYNDROME
     Dosage: 1507MG SINGLE DOSE
     Route: 042
     Dates: start: 20121215
  3. VINCRISTINE [Suspect]
     Indication: RICHTER^S SYNDROME
     Route: 042
     Dates: start: 20121215
  4. DOXORUBICIN [Suspect]
     Indication: RICHTER^S SYNDROME
     Dosage: 100MG SINGLE DOSE
     Route: 042
     Dates: start: 20121215
  5. PREDNISOLONE [Suspect]
     Indication: RICHTER^S SYNDROME
     Route: 048
     Dates: start: 20121214, end: 20121215
  6. PRO CAL [Concomitant]
     Indication: PROPHYLAXIS
     Dosage: 30ML FOUR TIMES PER DAY
     Route: 048
     Dates: start: 20121210, end: 20121218
  7. ENSURE [Concomitant]
     Indication: PROPHYLAXIS
     Dosage: 1BT THREE TIMES PER DAY
     Route: 048
     Dates: start: 20121210, end: 20121218
  8. CHLORPHENAMINE [Concomitant]
     Indication: PROPHYLAXIS
     Dosage: 4MG FOUR TIMES PER DAY
     Route: 048
     Dates: start: 20121211, end: 20121218
  9. DOMPERIDONE [Concomitant]
     Indication: PROPHYLAXIS
     Dosage: 20MG THREE TIMES PER DAY
     Route: 048
     Dates: start: 20121214, end: 20121218
  10. TAZOCIN [Concomitant]
     Indication: PROPHYLAXIS
     Dosage: 4.5G THREE TIMES PER DAY
     Route: 048
     Dates: start: 20121202, end: 20121218
  11. RASBURICASE [Concomitant]
     Indication: PROPHYLAXIS
     Dosage: 14MG AS REQUIRED
     Route: 042
     Dates: start: 20121208, end: 20121218
  12. ACICLOVIR [Concomitant]
     Indication: PROPHYLAXIS
     Dosage: 200MG THREE TIMES PER DAY
     Route: 048
     Dates: start: 20121210, end: 20121218
  13. COTRIMOXAZOLE [Concomitant]
     Indication: PROPHYLAXIS
     Dosage: 480MG TWICE PER DAY
     Route: 048
     Dates: start: 20121210, end: 20121218
  14. ONDANSETRON [Concomitant]
     Indication: PROPHYLAXIS
     Dosage: 8MG TWICE PER DAY
     Route: 048
     Dates: start: 20121210, end: 20121218
  15. FLUCONAZOLE [Concomitant]
     Indication: PROPHYLAXIS
     Dosage: 200MG TWICE PER DAY
     Route: 048
     Dates: start: 20121214, end: 20121217
  16. OMEPRAZOLE [Concomitant]
     Indication: PROPHYLAXIS
     Dosage: 40MG PER DAY
     Route: 048
     Dates: start: 20121210, end: 20121218

REACTIONS (3)
  - Tumour lysis syndrome [Fatal]
  - Diarrhoea [Not Recovered/Not Resolved]
  - Melaena [Not Recovered/Not Resolved]
